FAERS Safety Report 7233338-3 (Version None)
Quarter: 2011Q1

REPORT INFORMATION
  Report Type: 
  Country: None (occurrence: None)
  Receive Date: 20110119
  Receipt Date: 20110105
  Transmission Date: 20110831
  Serious: Yes (Other)
  Sender: FDA-Public Use
  Company Number: PHHY2011US01160

PATIENT
  Age: 51 Year

DRUGS (3)
  1. ITRACONAZOLE [Suspect]
     Indication: HISTOPLASMOSIS
     Dosage: 400 MG/DAY
  2. INFLIXIMAB [Concomitant]
     Indication: IMMUNOSUPPRESSANT DRUG THERAPY
     Dosage: 3 DF, UNK
  3. AZATHIOPRINE [Concomitant]
     Indication: IMMUNOSUPPRESSANT DRUG THERAPY
     Dosage: UNK

REACTIONS (1)
  - INFLAMMATORY BOWEL DISEASE [None]
